APPROVED DRUG PRODUCT: CLARITHROMYCIN
Active Ingredient: CLARITHROMYCIN
Strength: 250MG
Dosage Form/Route: TABLET;ORAL
Application: A206714 | Product #001
Applicant: JUBILANT CADISTA PHARMACEUTICALS INC
Approved: Apr 25, 2019 | RLD: No | RS: No | Type: DISCN